FAERS Safety Report 19477119 (Version 1)
Quarter: 2021Q2

REPORT INFORMATION
  Report Type: Other
  Country: DE (occurrence: DE)
  Receive Date: 20210630
  Receipt Date: 20210630
  Transmission Date: 20210717
  Serious: Yes (Death, Life-Threatening, Other)
  Sender: FDA-Public Use
  Company Number: DE-GLENMARK PHARMACEUTICALS-2021GMK054648

PATIENT

DRUGS (5)
  1. MARCUMAR [Suspect]
     Active Substance: PHENPROCOUMON
     Indication: ATRIAL FIBRILLATION
  2. LINEZOLID. [Suspect]
     Active Substance: LINEZOLID
     Indication: WOUND INFECTION
     Dosage: 1200 MILLIGRAM, OD
     Route: 048
     Dates: start: 20210529, end: 20210604
  3. AMIODARONE HYDROCHLORIDE. [Suspect]
     Active Substance: AMIODARONE HYDROCHLORIDE
     Indication: ATRIAL FIBRILLATION
     Dosage: 450MG IN 50 ML, 4 ML PRO STUNDE 08.06.2021: 15:00 UHR 10.06.2021: 10:00 UHR
     Route: 041
     Dates: start: 20210608, end: 20210610
  4. MARCUMAR [Suspect]
     Active Substance: PHENPROCOUMON
     Indication: ANTICOAGULANT THERAPY
     Dosage: 6 MILLIGRAM, QD
     Route: 048
     Dates: start: 20210605, end: 20210608
  5. MARCUMAR [Suspect]
     Active Substance: PHENPROCOUMON
     Indication: HEART VALVE REPLACEMENT

REACTIONS (2)
  - Shock [Fatal]
  - Acute hepatic failure [Fatal]

NARRATIVE: CASE EVENT DATE: 202106
